FAERS Safety Report 17602200 (Version 1)
Quarter: 2020Q1

REPORT INFORMATION
  Report Type: Spontaneous
  Country: US (occurrence: US)
  Receive Date: 20200330
  Receipt Date: 20200330
  Transmission Date: 20200409
  Serious: No
  Sender: FDA-Public Use
  Company Number: US-TOPROL ACQUISITION LLC-2019-TOP-000510

PATIENT
  Sex: Female
  Weight: 81.63 kg

DRUGS (5)
  1. AMLODIPINE [Concomitant]
     Active Substance: AMLODIPINE BESYLATE
  2. IRBESARTAN. [Concomitant]
     Active Substance: IRBESARTAN
  3. METOPROLOL SUCCINATE. [Suspect]
     Active Substance: METOPROLOL SUCCINATE
     Indication: CARDIAC DISORDER
     Dosage: 50 MG, QD
  4. TIMOPTIC [Concomitant]
     Active Substance: TIMOLOL MALEATE
  5. PILOCARPINE. [Concomitant]
     Active Substance: PILOCARPINE

REACTIONS (4)
  - Malaise [Recovered/Resolved]
  - Drug ineffective [Recovered/Resolved]
  - Product substitution issue [Recovered/Resolved]
  - Adverse drug reaction [Recovered/Resolved]
